FAERS Safety Report 7337595-4 (Version None)
Quarter: 2011Q1

REPORT INFORMATION
  Report Type: 
  Country: None (occurrence: None)
  Receive Date: 20110308
  Receipt Date: 20110302
  Transmission Date: 20110831
  Serious: Yes (Life-Threatening)
  Sender: FDA-Public Use
  Company Number: CH-ASTRAZENECA-2011SE12131

PATIENT
  Age: 29 Year
  Sex: Male

DRUGS (7)
  1. TOPAMAX [Suspect]
     Route: 048
     Dates: end: 20100711
  2. SEROQUEL [Suspect]
     Route: 048
  3. SEROQUEL [Suspect]
     Route: 048
     Dates: start: 20100717, end: 20100805
  4. ORFIRIL [Concomitant]
     Route: 048
  5. SEROQUEL [Suspect]
     Route: 048
     Dates: end: 20100711
  6. SEROQUEL [Suspect]
     Route: 048
  7. XANAX [Concomitant]
     Route: 048

REACTIONS (8)
  - HYPERTHERMIA [None]
  - HEPATIC ENZYME INCREASED [None]
  - HYPOVOLAEMIC SHOCK [None]
  - DISSEMINATED INTRAVASCULAR COAGULATION [None]
  - CIRCULATORY COLLAPSE [None]
  - NEUROLEPTIC MALIGNANT SYNDROME [None]
  - COMA [None]
  - RENAL FAILURE ACUTE [None]
